FAERS Safety Report 5086323-4 (Version None)
Quarter: 2006Q3

REPORT INFORMATION
  Report Type: 
  Country: None (occurrence: None)
  Receive Date: 20060823
  Receipt Date: 20030905
  Transmission Date: 20061208
  Serious: Yes (Hospitalization)
  Sender: FDA-Public Use
  Company Number: JP-ABBOTT-03P-087-0233135-00

PATIENT
  Sex: Male
  Weight: 53 kg

DRUGS (56)
  1. NORVIR [Suspect]
     Indication: HIV INFECTION
     Route: 048
     Dates: start: 19990929, end: 20021028
  2. KALETRA [Suspect]
     Indication: HIV INFECTION
     Route: 048
     Dates: start: 20030219
  3. DIDANOSINE [Suspect]
     Indication: HIV INFECTION
     Route: 048
     Dates: start: 20020401, end: 20021028
  4. STAVUDINE [Suspect]
     Indication: HIV INFECTION
     Route: 048
     Dates: start: 20020401, end: 20021021
  5. SAQUINAVIR [Suspect]
     Indication: HIV INFECTION
     Route: 048
     Dates: start: 20020401, end: 20021028
  6. ABACAVIR [Suspect]
     Indication: HIV INFECTION
     Route: 048
     Dates: start: 20021022, end: 20021028
  7. POLAPREZINC [Suspect]
     Indication: GASTRITIS
     Route: 048
     Dates: start: 20020401, end: 20021028
  8. POLAPREZINC [Suspect]
     Route: 048
     Dates: start: 20021224, end: 20030623
  9. LAMIVUDINE [Suspect]
     Indication: HIV INFECTION
     Route: 048
     Dates: start: 20030219
  10. TENOFOVIR [Suspect]
     Indication: HIV INFECTION
     Route: 048
     Dates: start: 20030219
  11. BLOOD COAGULATION FACTORS [Concomitant]
     Indication: FACTOR VIII DEFICIENCY
     Dosage: 5-6 KU
     Route: 042
     Dates: start: 20020401
  12. MEFENAMIC ACID [Concomitant]
     Indication: HEADACHE
     Route: 048
     Dates: start: 20020401, end: 20021028
  13. MEFENAMIC ACID [Concomitant]
     Route: 048
     Dates: start: 20030108, end: 20040528
  14. BROTIZOLAM [Concomitant]
     Indication: INSOMNIA
     Route: 048
     Dates: start: 20020401, end: 20051103
  15. BROTIZOLAM [Concomitant]
     Route: 048
     Dates: start: 20021224
  16. SENNOSIDE [Concomitant]
     Indication: CONSTIPATION
     Route: 048
     Dates: start: 20020401, end: 20021028
  17. SENNOSIDE [Concomitant]
     Route: 048
     Dates: start: 20021224
  18. SENNOSIDE [Concomitant]
     Route: 048
     Dates: start: 20051209, end: 20060303
  19. OMEPRAZOLE [Concomitant]
     Indication: GASTRIC ULCER
     Route: 048
     Dates: start: 20021029, end: 20021125
  20. LOXOPROFEN SODIUM [Concomitant]
     Indication: HEADACHE
     Route: 048
     Dates: start: 20021224, end: 20051208
  21. TRIAZOLAM [Concomitant]
     Indication: INSOMNIA
     Route: 048
     Dates: start: 20021226, end: 20030108
  22. ITOPRIDE HYDROCHLORIDE [Concomitant]
     Indication: GASTRITIS
     Route: 048
     Dates: start: 20030109, end: 20040412
  23. ITOPRIDE HYDROCHLORIDE [Concomitant]
     Route: 048
     Dates: start: 20040708, end: 20051020
  24. MAGNESIUM OXIDE [Concomitant]
     Indication: CONSTIPATION
     Route: 048
     Dates: start: 20021028, end: 20021202
  25. MAGNESIUM OXIDE [Concomitant]
     Route: 048
     Dates: start: 20030107, end: 20051020
  26. MAGNESIUM OXIDE [Concomitant]
     Route: 048
     Dates: start: 20051214, end: 20060104
  27. MAGNESIUM OXIDE [Concomitant]
     Route: 048
     Dates: start: 20060105
  28. RIBAVIRIN [Concomitant]
     Indication: HEPATITIS C
     Route: 048
     Dates: start: 20020805, end: 20021028
  29. OCTOCOG ALFA [Concomitant]
     Indication: FACTOR VIII DEFICIENCY
     Route: 042
     Dates: start: 20030610, end: 20050517
  30. OCTOCOG ALFA [Concomitant]
     Dosage: 5-6000 UNIT DAILY DOSE
     Route: 042
     Dates: start: 20050518
  31. DIGESTIVE ENZYME PREPARATION [Concomitant]
     Indication: GASTRITIS
     Route: 048
     Dates: start: 20030919, end: 20040412
  32. LORAZEPAM [Concomitant]
     Indication: INSOMNIA
     Route: 048
     Dates: start: 20030921, end: 20031127
  33. LORAZEPAM [Concomitant]
     Indication: NAUSEA
     Route: 048
     Dates: start: 20051227
  34. LORAZEPAM [Concomitant]
     Indication: VOMITING
  35. SULPIRIDE [Concomitant]
     Indication: GASTRITIS
     Route: 048
     Dates: start: 20040528, end: 20051020
  36. DICLOFENAC SODIUM [Concomitant]
     Indication: HEADACHE
     Route: 048
     Dates: start: 20040529
  37. DICLOFENAC SODIUM [Concomitant]
     Route: 048
     Dates: start: 20050401, end: 20060106
  38. RANITIDINE HYDROCHLORIDE [Concomitant]
     Indication: GASTRIC ULCER
     Route: 048
     Dates: end: 20051226
  39. TRICHLORMETHIAZIDE [Concomitant]
     Indication: HYPERTENSION
     Route: 048
     Dates: start: 20050804, end: 20051027
  40. MAINTENANCE FLUID/ELECTROLYTES INFUSION [Concomitant]
     Indication: ANOREXIA
     Route: 042
     Dates: start: 20051027, end: 20051027
  41. MAINTENANCE FLUID/ELECTROLYTES INFUSION [Concomitant]
     Indication: MALNUTRITION
  42. B-KOMPLEX ^LECIVA^ [Concomitant]
     Indication: ANOREXIA
     Route: 042
     Dates: start: 20051027, end: 20051118
  43. B-KOMPLEX ^LECIVA^ [Concomitant]
     Indication: MALNUTRITION
  44. DEXTROSE, AMINO-ACID, ELECTROLYTE INFUSION/MULTIPLE VITAMIN [Concomitant]
     Indication: ANOREXIA
     Route: 042
     Dates: start: 20051028, end: 20051118
  45. DEXTROSE, AMINO-ACID, ELECTROLYTE INFUSION/MULTIPLE VITAMIN [Concomitant]
     Indication: MALNUTRITION
     Route: 042
     Dates: start: 20051119, end: 20051218
  46. ESTAZOLAM [Concomitant]
     Indication: INSOMNIA
     Route: 048
     Dates: start: 20051104, end: 20051115
  47. ESTAZOLAM [Concomitant]
     Route: 048
     Dates: start: 20051116, end: 20051226
  48. MIANSERIN HYDROCHLORIDE [Concomitant]
     Indication: INSOMNIA
     Route: 048
     Dates: start: 20051116, end: 20051226
  49. URSODEOXYCHOLIC ACID [Concomitant]
     Indication: CHRONIC HEPATITIS
     Dates: start: 20051226, end: 20060108
  50. ROXATIDINE ACETATE HCL [Concomitant]
     Indication: GASTRIC ULCER
     Route: 048
     Dates: start: 20051227
  51. STRONGER NEO-MINOPHAGEN C [Concomitant]
     Indication: CHRONIC HEPATITIS
     Route: 042
     Dates: start: 20060109, end: 20060205
  52. MELOXICAM [Concomitant]
     Indication: HEADACHE
     Route: 048
     Dates: start: 20060107
  53. FLUCONAZOLE [Concomitant]
     Indication: ORAL CANDIDIASIS
     Route: 048
     Dates: start: 20060118, end: 20060227
  54. FERRIC OXIDE, SACCHARATED [Concomitant]
     Indication: ANAEMIA
     Route: 042
     Dates: start: 20060217, end: 20060302
  55. FERRIC SODIUM CITRATE [Concomitant]
     Indication: ANAEMIA
     Route: 048
     Dates: start: 20051020, end: 20051027
  56. FERRIC SODIUM CITRATE [Concomitant]
     Route: 048
     Dates: start: 20051104, end: 20051219

REACTIONS (17)
  - ABDOMINAL PAIN [None]
  - ALANINE AMINOTRANSFERASE INCREASED [None]
  - ANAEMIA [None]
  - APHTHOUS STOMATITIS [None]
  - ASPARTATE AMINOTRANSFERASE INCREASED [None]
  - BEHCET'S SYNDROME [None]
  - CATARACT [None]
  - CUBITAL TUNNEL SYNDROME [None]
  - DIABETES MELLITUS [None]
  - DISSEMINATED INTRAVASCULAR COAGULATION [None]
  - GASTRIC ULCER [None]
  - HYPERLACTACIDAEMIA [None]
  - HYPOAESTHESIA [None]
  - ILEAL ULCER [None]
  - LIVER DISORDER [None]
  - MELAENA [None]
  - PANCREATITIS ACUTE [None]
